FAERS Safety Report 18328152 (Version 1)
Quarter: 2020Q3

REPORT INFORMATION
  Report Type: Spontaneous
  Country: DE (occurrence: DE)
  Receive Date: 20200929
  Receipt Date: 20200929
  Transmission Date: 20201103
  Serious: Yes (Other)
  Sender: FDA-Public Use
  Company Number: DE-AUROBINDO-AUR-APL-2020-049518

PATIENT
  Age: 57 Year
  Sex: Male
  Weight: 90 kg

DRUGS (5)
  1. ALCOHOL. [Suspect]
     Active Substance: ALCOHOL
     Indication: PRODUCT USED FOR UNKNOWN INDICATION
     Dosage: UNK (1 BOTTLE)
     Route: 048
     Dates: start: 20200914
  2. RAMIPRIL BETA COMP [Suspect]
     Active Substance: HYDROCHLOROTHIAZIDE\RAMIPRIL
     Indication: PRODUCT USED FOR UNKNOWN INDICATION
     Dosage: 10 DOSAGE FORM, 1 TOTAL
     Route: 048
     Dates: start: 20200914, end: 20200914
  3. METFORMIN [Suspect]
     Active Substance: METFORMIN HYDROCHLORIDE
     Indication: PRODUCT USED FOR UNKNOWN INDICATION
     Dosage: UNK (UNKNOWN QUANTITY)
     Route: 048
     Dates: start: 20200914, end: 20200914
  4. AMITRIPTYLINE [Suspect]
     Active Substance: AMITRIPTYLINE
     Indication: PRODUCT USED FOR UNKNOWN INDICATION
     Dosage: 10 DOSAGE FORM, 1 TOTAL
     Route: 048
     Dates: start: 20200914, end: 20200914
  5. IBUPROFEN 600 MG FILM?COATED TABLET [Suspect]
     Active Substance: IBUPROFEN
     Indication: PRODUCT USED FOR UNKNOWN INDICATION
     Dosage: 20 DOSAGE FORM, 1 TOTAL
     Route: 048
     Dates: start: 20200914, end: 20200914

REACTIONS (8)
  - Dysarthria [Unknown]
  - Acidosis [Unknown]
  - Renal failure [Unknown]
  - Intentional overdose [Unknown]
  - Hyperglycaemia [Unknown]
  - Somnolence [Unknown]
  - Hyperventilation [Unknown]
  - Constipation [Unknown]

NARRATIVE: CASE EVENT DATE: 20200914
